FAERS Safety Report 9240608 (Version 1)
Quarter: 2013Q1

REPORT INFORMATION
  Report Type: Spontaneous
  Country: US (occurrence: None)
  Receive Date: 20121120
  Receipt Date: 20121120
  Transmission Date: 20140127
  Serious: No
  Sender: FDA-Public Use
  Company Number: 1000038660

PATIENT
  Age: 29 Year
  Sex: Female

DRUGS (1)
  1. VIIBRYD ( VILAZODONE HYDROCHLORIDE) ( 10 MILLIGRAM, TABLETS) [Suspect]
     Indication: ANXIETY
     Dosage: 10 MG ( 10 MG, 1 IN 1 D), ORAL
     Route: 048
     Dates: start: 20120907, end: 20120910

REACTIONS (7)
  - Anxiety [None]
  - Pyrexia [None]
  - Hallucination [None]
  - Restlessness [None]
  - Speech disorder [None]
  - Headache [None]
  - Off label use [None]
